FAERS Safety Report 5074609-9 (Version None)
Quarter: 2006Q3

REPORT INFORMATION
  Report Type: 
  Country: None (occurrence: None)
  Receive Date: 20060808
  Receipt Date: 20050809
  Transmission Date: 20061208
  Serious: No
  Sender: FDA-Public Use
  Company Number: US-AMGEN-KDL146066

PATIENT
  Sex: Female

DRUGS (4)
  1. PROCRIT [Suspect]
     Indication: RENAL FAILURE CHRONIC
  2. COMPAZINE [Concomitant]
  3. VITAMINS [Concomitant]
  4. FOLIC ACID [Concomitant]

REACTIONS (3)
  - MALAISE [None]
  - NAUSEA [None]
  - SOMNOLENCE [None]
